FAERS Safety Report 8464566-7 (Version None)
Quarter: 2012Q2

REPORT INFORMATION
  Report Type: 
  Country: None (occurrence: None)
  Receive Date: 20120620
  Receipt Date: 20120620
  Transmission Date: 20120825
  Serious: No
  Sender: FDA-Public Use
  Company Number: None

PATIENT
  Age: 73 Year
  Sex: Male

DRUGS (5)
  1. REVLIMID [Suspect]
     Indication: CHRONIC LYMPHOCYTIC LEUKAEMIA
     Dosage: 5MG QDX21D/28D ORALLY
     Route: 048
     Dates: start: 20120101, end: 20120401
  2. LASIX [Concomitant]
  3. RITUXAN [Concomitant]
  4. K-TAB [Concomitant]
  5. DECADRON [Concomitant]

REACTIONS (1)
  - NEUTROPENIA [None]
